FAERS Safety Report 12831511 (Version 2)
Quarter: 2016Q4

REPORT INFORMATION
  Report Type: Report from Study
  Country: None (occurrence: CA)
  Receive Date: 20161009
  Receipt Date: 20161024
  Transmission Date: 20170207
  Serious: Yes (Hospitalization, Other)
  Sender: FDA-Public Use
  Company Number: CA-ABBVIE-16P-028-1749008-00

PATIENT
  Sex: Male

DRUGS (1)
  1. HUMIRA [Suspect]
     Active Substance: ADALIMUMAB
     Indication: CROHN^S DISEASE
     Route: 058
     Dates: start: 20131112, end: 2016

REACTIONS (8)
  - Anaemia macrocytic [Unknown]
  - Vitamin B12 deficiency [Unknown]
  - Malaise [Recovering/Resolving]
  - Gastrointestinal stenosis [Recovered/Resolved]
  - Crohn^s disease [Unknown]
  - Schizophrenia [Unknown]
  - Gastrointestinal obstruction [Recovered/Resolved]
  - Macrocytosis [Unknown]

NARRATIVE: CASE EVENT DATE: 2016
